FAERS Safety Report 5385774-8 (Version None)
Quarter: 2007Q3

REPORT INFORMATION
  Report Type: 
  Country: None (occurrence: None)
  Receive Date: 20070712
  Receipt Date: 20070705
  Transmission Date: 20080115
  Serious: Yes (Hospitalization, Other)
  Sender: FDA-Public Use
  Company Number: US-ASTRAZENECA-2007UW15903

PATIENT
  Age: 78 Year
  Sex: Female
  Weight: 67.9 kg

DRUGS (9)
  1. TOPROL-XL [Suspect]
     Indication: HYPERTENSION
     Route: 048
     Dates: start: 20030101, end: 20050926
  2. TOPROL-XL [Suspect]
     Route: 048
     Dates: start: 20050926, end: 20050926
  3. TOPROL-XL [Suspect]
     Route: 048
     Dates: start: 20050927
  4. TOPROL-XL [Suspect]
     Route: 048
     Dates: start: 20060927
  5. S-1 (TS 1) [Suspect]
     Indication: PANCREATIC CARCINOMA METASTATIC
     Route: 048
     Dates: start: 20050908, end: 20050921
  6. DECADRON [Concomitant]
     Indication: DYSPNOEA EXERTIONAL
     Route: 048
     Dates: start: 20060803
  7. COUMADIN [Concomitant]
     Indication: ATRIAL FIBRILLATION
     Route: 048
     Dates: start: 20030101
  8. LORAZEPAM [Concomitant]
     Indication: ANXIETY
     Route: 048
     Dates: start: 19890101
  9. LEVOTHYROXINE SODIUM [Concomitant]
     Indication: HYPOTHYROIDISM
     Route: 048
     Dates: start: 19890101

REACTIONS (20)
  - ANAEMIA [None]
  - ASTHENIA [None]
  - BLOOD BICARBONATE ABNORMAL [None]
  - BLOOD CALCIUM DECREASED [None]
  - BLOOD POTASSIUM DECREASED [None]
  - BLOOD SODIUM DECREASED [None]
  - CLOSTRIDIUM DIFFICILE COLITIS [None]
  - CONFUSIONAL STATE [None]
  - DEHYDRATION [None]
  - DIARRHOEA [None]
  - DYSPHAGIA [None]
  - DYSPNOEA EXERTIONAL [None]
  - FALL [None]
  - HAEMATOMA [None]
  - MUSCULOSKELETAL PAIN [None]
  - OEDEMA PERIPHERAL [None]
  - RIB FRACTURE [None]
  - STOMATITIS [None]
  - SYNCOPE [None]
  - THROMBOCYTOPENIA [None]
